FAERS Safety Report 17756872 (Version 1)
Quarter: 2020Q2

REPORT INFORMATION
  Report Type: Report from Study
  Country: GB (occurrence: GB)
  Receive Date: 20200507
  Receipt Date: 20200507
  Transmission Date: 20200714
  Serious: Yes (Other)
  Sender: FDA-Public Use
  Company Number: NVSC2020GB124047

PATIENT
  Sex: Female

DRUGS (1)
  1. COSENTYX [Suspect]
     Active Substance: SECUKINUMAB
     Indication: PRODUCT USED FOR UNKNOWN INDICATION
     Dosage: 150 MG, QMO
     Route: 058
     Dates: start: 20190715

REACTIONS (10)
  - COVID-19 [Unknown]
  - Pyrexia [Unknown]
  - Malaise [Unknown]
  - Urinary tract infection [Unknown]
  - Tremor [Unknown]
  - Kidney infection [Unknown]
  - Cough [Unknown]
  - Feeling cold [Unknown]
  - Ageusia [Unknown]
  - Anosmia [Unknown]
